FAERS Safety Report 7440883-4 (Version None)
Quarter: 2011Q2

REPORT INFORMATION
  Report Type: 
  Country: None (occurrence: None)
  Receive Date: 20110427
  Receipt Date: 20110418
  Transmission Date: 20111010
  Serious: Yes (Disabling, Other)
  Sender: FDA-Public Use
  Company Number: US-BAYER-2011-034300

PATIENT

DRUGS (2)
  1. YASMIN [Suspect]
     Dosage: UNK
     Dates: start: 20060201, end: 20080801
  2. YAZ [Suspect]
     Dosage: UNK
     Dates: start: 20060201, end: 20080801

REACTIONS (3)
  - INJURY [None]
  - PAIN [None]
  - GALLBLADDER DISORDER [None]
